FAERS Safety Report 7584303-8 (Version None)
Quarter: 2011Q2

REPORT INFORMATION
  Report Type: 
  Country: None (occurrence: None)
  Receive Date: 20110630
  Receipt Date: 20110627
  Transmission Date: 20111010
  Serious: Yes (Hospitalization, Other)
  Sender: FDA-Public Use
  Company Number: GR-PFIZER INC-2011116105

PATIENT
  Age: 67 Year
  Sex: Male

DRUGS (7)
  1. MESALAMINE [Suspect]
     Indication: COLITIS ULCERATIVE
     Dosage: 3.2 G, DAILY
  2. LEVOFLOXACIN [Suspect]
     Indication: ANTIBIOTIC THERAPY
  3. VORICONAZOLE [Suspect]
     Dosage: 4MG/KG IN TWO EQUALLY DIVIDED DOSES
     Route: 042
  4. METHYLPREDNISOLONE [Suspect]
     Indication: COLITIS ULCERATIVE
     Dosage: 36 MG, 1X/DAY
     Route: 048
  5. AZATHIOPRINE [Suspect]
     Indication: COLITIS ULCERATIVE
     Dosage: 150 MG, DAILY
  6. VORICONAZOLE [Suspect]
     Indication: BRONCHOPULMONARY ASPERGILLOSIS
     Dosage: 6MG/KG IN TWO EQUALLY DIVIDED DOSES FOR THE FIRST 24HRS
     Route: 042
  7. PIPERACILLIN AND TAZOBACTAM [Suspect]
     Indication: ANTIBIOTIC THERAPY
     Dosage: UNK
     Route: 042

REACTIONS (3)
  - OFF LABEL USE [None]
  - DRUG INEFFECTIVE [None]
  - BRONCHOPULMONARY ASPERGILLOSIS [None]
